FAERS Safety Report 8994837 (Version 2)
Quarter: 2013Q1

REPORT INFORMATION
  Report Type: Spontaneous
  Country: US (occurrence: US)
  Receive Date: 20130102
  Receipt Date: 20130204
  Transmission Date: 20140127
  Serious: No
  Sender: FDA-Public Use
  Company Number: US-AMGEN-USASP2012078713

PATIENT
  Age: 39 Year
  Sex: Female
  Weight: 101.13 kg

DRUGS (1)
  1. ENBREL [Suspect]
     Indication: RHEUMATOID ARTHRITIS
     Dosage: 50 MG, QWK
     Route: 058
     Dates: start: 20120924, end: 201210

REACTIONS (5)
  - Oral mucosal blistering [Recovered/Resolved]
  - Urinary tract infection [Recovered/Resolved]
  - Conjunctivitis infective [Recovered/Resolved]
  - Gastroenteritis viral [Recovered/Resolved]
  - Pharyngitis streptococcal [Recovered/Resolved]
